FAERS Safety Report 17982424 (Version 1)
Quarter: 2020Q3

REPORT INFORMATION
  Report Type: Spontaneous
  Country: US (occurrence: US)
  Receive Date: 20200702
  Receipt Date: 20200702
  Transmission Date: 20201103
  Serious: No
  Sender: FDA-Public Use
  Company Number: None

PATIENT
  Age: 67 Year
  Sex: Male
  Weight: 93.6 kg

DRUGS (16)
  1. VITAMIN D3 [Concomitant]
     Active Substance: CHOLECALCIFEROL
  2. VIT K2 [Concomitant]
  3. MAGNESIUM [Concomitant]
     Active Substance: MAGNESIUM
  4. PROSTATE ESSENTIALS [Concomitant]
  5. RAMAPRIL [Concomitant]
  6. BIOTIN [Concomitant]
     Active Substance: BIOTIN
  7. 5?HTP [Concomitant]
  8. MULTI VITAMIN [Concomitant]
     Active Substance: VITAMINS
  9. EZETAMIDE [Concomitant]
  10. BABY ASPIRIN [Concomitant]
     Active Substance: ASPIRIN
  11. UBIQUINOL [Concomitant]
     Active Substance: UBIQUINOL
  12. NIACIN. [Concomitant]
     Active Substance: NIACIN
  13. GLUCOSAMINE/HYALURONIC ACID/MSM [Concomitant]
  14. REPATHA [Suspect]
     Active Substance: EVOLOCUMAB
     Indication: BLOOD CHOLESTEROL INCREASED
     Dosage: ?          OTHER FREQUENCY:ONCE EVERY 14 DAYS;OTHER ROUTE:INJECTION INTO ABDOMEN REGION?
     Dates: start: 20200215
  15. CORONARY ARTERY STENTS [Concomitant]
  16. MELATONIN [Concomitant]
     Active Substance: MELATONIN

REACTIONS (1)
  - Glycosylated haemoglobin increased [None]

NARRATIVE: CASE EVENT DATE: 20200217
